FAERS Safety Report 20447046 (Version 4)
Quarter: 2022Q2

REPORT INFORMATION
  Report Type: Report from Study
  Country: JP (occurrence: JP)
  Receive Date: 20220209
  Receipt Date: 20220514
  Transmission Date: 20220721
  Serious: Yes (Hospitalization, Other)
  Sender: FDA-Public Use
  Company Number: JP-ONO-2022JP003055

PATIENT
  Age: 81 Year
  Sex: Male
  Weight: 56.7 kg

DRUGS (22)
  1. NIVOLUMAB [Suspect]
     Active Substance: NIVOLUMAB
     Indication: Neoplasm
     Dosage: 360 MILLIGRAM, Q3WK
     Route: 041
     Dates: start: 20210914
  2. ERIBULIN [Suspect]
     Active Substance: ERIBULIN
     Indication: Neoplasm
     Dosage: 2.1 MG/M2, Q3W
     Route: 041
     Dates: start: 20210914
  3. ERIBULIN [Suspect]
     Active Substance: ERIBULIN
     Dosage: 2.1 MG/M2
     Route: 041
     Dates: start: 20220105, end: 20220105
  4. ERIBULIN MESYLATE [Suspect]
     Active Substance: ERIBULIN MESYLATE
     Indication: Neoplasm
     Dosage: 2.1 MILLIGRAM/SQ. METER, Q3WK
     Route: 041
     Dates: start: 20210914
  5. ERIBULIN MESYLATE [Suspect]
     Active Substance: ERIBULIN MESYLATE
     Dosage: 2.1 MILLIGRAM/SQ. METER, Q3WK
     Route: 041
     Dates: start: 20220105
  6. AMBROXOL HYDROCHLORIDE [Concomitant]
     Active Substance: AMBROXOL HYDROCHLORIDE
     Indication: Cough
     Dosage: 45 MG, EVERYDAY
     Route: 048
     Dates: start: 20210922
  7. CARBOCYSTEINE [Concomitant]
     Active Substance: CARBOCYSTEINE
     Indication: Cough
     Dosage: 250 MG, EVERYDAY
     Route: 048
     Dates: start: 20210922
  8. HERBALS [Concomitant]
     Active Substance: HERBALS
     Indication: Prophylaxis
     Dosage: 2.5 G, Q8H
     Route: 048
     Dates: start: 20211001
  9. BELSOMRA [Concomitant]
     Active Substance: SUVOREXANT
     Indication: Insomnia
     Dosage: 15 MG, EVERYDAY
     Route: 048
     Dates: start: 20210328
  10. TRAZODONE HYDROCHLORIDE [Concomitant]
     Active Substance: TRAZODONE HYDROCHLORIDE
     Indication: Insomnia
     Dosage: 25 MG, EVERYDAY
     Route: 048
     Dates: start: 20210922
  11. SALIPARA [Concomitant]
     Indication: Cough
     Dosage: 2.5 ML, Q6H
     Route: 048
     Dates: start: 20210917
  12. PRUNUS SPP. SEED [Concomitant]
     Indication: Cough
     Dosage: 1.25 ML, Q6H
     Route: 048
     Dates: start: 20210917
  13. CODEINE PHOSPHATE [Concomitant]
     Active Substance: CODEINE PHOSPHATE
     Indication: Cough
     Dosage: 20 MG, PRN
     Route: 048
     Dates: start: 20210917
  14. ENSURE [Concomitant]
     Active Substance: AMINO ACIDS\DEXTROSE\ELECTROLYTES NOS\SOYBEAN OIL\VITAMINS
     Indication: Decreased appetite
     Dosage: 250 MG, EVERYDAY
     Route: 048
     Dates: start: 20210925
  15. DESLORATADINE [Concomitant]
     Active Substance: DESLORATADINE
     Indication: Pruritus
     Dosage: 5 MG, PRN
     Route: 048
     Dates: start: 20220104
  16. EURAX [Concomitant]
     Active Substance: CROTAMITON
     Indication: Pruritus
     Dosage: APPROPRIATE AMOUNT, PRN
     Route: 061
     Dates: start: 20210104
  17. EPINASTINE HYDROCHLORIDE [Concomitant]
     Active Substance: EPINASTINE HYDROCHLORIDE
     Indication: Pruritus
     Dosage: 20 MG, PRN
     Route: 048
     Dates: start: 20220104
  18. VENAPASTA [Concomitant]
     Indication: Pruritus
     Dosage: APPROPRIATE AMOUNT, SEVERAL TIMES A DAY
     Route: 061
     Dates: start: 20220124
  19. NEXIUM [Concomitant]
     Active Substance: ESOMEPRAZOLE MAGNESIUM
     Indication: Prophylaxis of nausea and vomiting
     Dosage: 20 MG, EVERYDAY
     Route: 048
     Dates: start: 20211216
  20. PREGABALIN [Concomitant]
     Active Substance: PREGABALIN
     Indication: Pruritus
     Dosage: 25 MG, PRN
     Route: 048
     Dates: start: 20220127
  21. NEO-MINOPHAGEN C [Concomitant]
     Active Substance: AMMONIUM GLYCYRRHIZATE
     Indication: Pruritus
     Dosage: 20 ML, PRN
     Route: 041
     Dates: start: 20220125
  22. POLARAMINE [Concomitant]
     Active Substance: DEXCHLORPHENIRAMINE MALEATE
     Indication: Pruritus
     Dosage: 1 ML, PRN
     Route: 041
     Dates: start: 20220125

REACTIONS (1)
  - Radiation pneumonitis [Recovering/Resolving]

NARRATIVE: CASE EVENT DATE: 20220128
